FAERS Safety Report 8004444-0 (Version None)
Quarter: 2011Q4

REPORT INFORMATION
  Report Type: 
  Country: None (occurrence: None)
  Receive Date: 20111221
  Receipt Date: 20111221
  Transmission Date: 20120403
  Serious: Yes (Other)
  Sender: FDA-Public Use
  Company Number: None

PATIENT
  Age: 73 Year
  Sex: Female
  Weight: 72.5755 kg

DRUGS (1)
  1. ACTONEL [Suspect]
     Indication: OSTEOPOROSIS
     Dosage: 150MG (1) TABLET MONTHLY
     Dates: start: 20111125

REACTIONS (4)
  - URTICARIA [None]
  - SWELLING FACE [None]
  - PARAESTHESIA [None]
  - EYE SWELLING [None]
